FAERS Safety Report 9485396 (Version 1)
Quarter: 2013Q3

REPORT INFORMATION
  Report Type: Report from Study
  Country: US (occurrence: US)
  Receive Date: 20130829
  Receipt Date: 20130829
  Transmission Date: 20140515
  Serious: Yes (Other)
  Sender: FDA-Public Use
  Company Number: US-ROCHE-1000934

PATIENT
  Sex: Female

DRUGS (15)
  1. OMALIZUMAB [Suspect]
     Indication: ASTHMA
     Route: 058
     Dates: start: 20110907
  2. ADVAIR DISKUS [Concomitant]
     Route: 065
  3. ALBUTEROL NEBULIZER [Concomitant]
     Route: 065
  4. ALLEGRA [Concomitant]
     Route: 065
  5. ATROVENT [Concomitant]
     Route: 065
  6. FLONASE [Concomitant]
     Route: 065
  7. LORATADINE [Concomitant]
     Route: 065
  8. PROAIR (UNITED STATES) [Concomitant]
     Route: 065
  9. SINGULAIR [Concomitant]
     Route: 065
  10. MAXALT-MLT [Concomitant]
     Route: 065
  11. NEXIUM [Concomitant]
     Route: 065
  12. NORTRIPTYLINE [Concomitant]
     Route: 065
  13. VITAMIN B12 [Concomitant]
     Route: 065
  14. ZYRTEC [Concomitant]
     Route: 065
  15. ALGIN [Concomitant]
     Route: 065

REACTIONS (4)
  - Dysphagia [Unknown]
  - Oral pruritus [Unknown]
  - Throat tightness [Unknown]
  - Pruritus generalised [Unknown]
